FAERS Safety Report 9230683 (Version 2)
Quarter: 2014Q2

REPORT INFORMATION
  Report Type: Spontaneous
  Country: US (occurrence: US)
  Receive Date: 20130415
  Receipt Date: 20140604
  Transmission Date: 20141212
  Serious: Yes (Hospitalization)
  Sender: FDA-Public Use
  Company Number: US-AMGEN-USASP2013025741

PATIENT
  Age: 58 Year
  Sex: Male
  Weight: 88.44 kg

DRUGS (1)
  1. ENBREL [Suspect]
     Indication: PSORIASIS
     Dosage: 50 MG, QWK
     Route: 058

REACTIONS (3)
  - Myocardial infarction [Recovered/Resolved]
  - Back pain [Not Recovered/Not Resolved]
  - Injection site pain [Not Recovered/Not Resolved]
